FAERS Safety Report 14504616 (Version 1)
Quarter: 2018Q1

REPORT INFORMATION
  Report Type: Spontaneous
  Country: US (occurrence: US)
  Receive Date: 20180208
  Receipt Date: 20180208
  Transmission Date: 20180509
  Serious: No
  Sender: FDA-Public Use
  Company Number: US-JNJFOC-20180111099

PATIENT
  Age: 81 Year
  Sex: Male
  Weight: 80.29 kg

DRUGS (1)
  1. TYLENOL EXTRA STRENGTH [Suspect]
     Active Substance: ACETAMINOPHEN
     Indication: SPONDYLITIS
     Dosage: STARTED ABOUT 3 WEEKS AGO
     Route: 065
     Dates: start: 2017

REACTIONS (2)
  - Drug administration error [Unknown]
  - Incorrect dose administered [Unknown]

NARRATIVE: CASE EVENT DATE: 2017
